FAERS Safety Report 25212584 (Version 2)
Quarter: 2025Q3

REPORT INFORMATION
  Report Type: Report from Study
  Country: US (occurrence: US)
  Receive Date: 20250418
  Receipt Date: 20250810
  Transmission Date: 20251021
  Serious: Yes (Hospitalization)
  Sender: ALEXION PHARMACEUTICALS
  Company Number: US-AstraZeneca-CH-00848613A

PATIENT
  Sex: Female

DRUGS (13)
  1. BENRALIZUMAB [Suspect]
     Active Substance: BENRALIZUMAB
     Indication: Asthma
     Dosage: 30 MILLIGRAM, Q8W
     Dates: start: 20250221
  2. ATORVASTATIN [Concomitant]
     Active Substance: ATORVASTATIN
  3. ELIQUIS [Concomitant]
     Active Substance: APIXABAN
  4. AMLODIPINE [Concomitant]
     Active Substance: AMLODIPINE BESYLATE
  5. PREGABALIN [Concomitant]
     Active Substance: PREGABALIN
  6. PANTOPRAZOLE [Concomitant]
     Active Substance: PANTOPRAZOLE
  7. SYMBICORT [Concomitant]
     Active Substance: BUDESONIDE\FORMOTEROL FUMARATE DIHYDRATE
  8. FARXIGA [Concomitant]
     Active Substance: DAPAGLIFLOZIN PROPANEDIOL
  9. METOPROLOL [Concomitant]
     Active Substance: METOPROLOL
  10. METFORMIN [Concomitant]
     Active Substance: METFORMIN HYDROCHLORIDE
  11. FASENRA [Concomitant]
     Active Substance: BENRALIZUMAB
  12. OFEV [Concomitant]
     Active Substance: NINTEDANIB
  13. LISINOPRIL [Concomitant]
     Active Substance: LISINOPRIL

REACTIONS (6)
  - Iron deficiency [Unknown]
  - Quality of life decreased [Unknown]
  - Back pain [Unknown]
  - Fatigue [Unknown]
  - Headache [Unknown]
  - Product dose omission issue [Unknown]
